FAERS Safety Report 7378446-1 (Version None)
Quarter: 2011Q1

REPORT INFORMATION
  Report Type: 
  Country: None (occurrence: None)
  Receive Date: 20110328
  Receipt Date: 20110317
  Transmission Date: 20110831
  Serious: Yes (Hospitalization, Disabling)
  Sender: FDA-Public Use
  Company Number: US-MERCK-1010USA02209

PATIENT
  Age: 77 Year
  Sex: Female
  Weight: 52 kg

DRUGS (3)
  1. ACTONEL [Suspect]
     Indication: OSTEOPENIA
     Route: 048
     Dates: start: 20000101, end: 20011201
  2. FOSAMAX [Suspect]
     Route: 048
     Dates: start: 20080218, end: 20090427
  3. FOSAMAX [Suspect]
     Indication: OSTEOPENIA
     Route: 048
     Dates: start: 20010301, end: 20080217

REACTIONS (8)
  - FISTULA DISCHARGE [None]
  - OSTEONECROSIS OF JAW [None]
  - SUBCUTANEOUS ABSCESS [None]
  - HYPERTENSION [None]
  - DENTAL CARIES [None]
  - CELLULITIS [None]
  - TOOTH ABSCESS [None]
  - TOOTH DISORDER [None]
